FAERS Safety Report 5714842-3 (Version None)
Quarter: 2008Q2

REPORT INFORMATION
  Report Type: 
  Country: None (occurrence: None)
  Receive Date: 20080423
  Receipt Date: 20070329
  Transmission Date: 20081010
  Serious: No
  Sender: FDA-Public Use
  Company Number: US-BAYER-US-2007-011451

PATIENT

DRUGS (1)
  1. LEUKINE [Suspect]

REACTIONS (1)
  - ADVERSE EVENT [None]
